FAERS Safety Report 10139558 (Version 1)
Quarter: 2014Q2

REPORT INFORMATION
  Report Type: Spontaneous
  Country: GB (occurrence: GB)
  Receive Date: 20140429
  Receipt Date: 20140429
  Transmission Date: 20141212
  Serious: Yes (Other)
  Sender: FDA-Public Use
  Company Number: GB-ACTAVIS-2014-08321

PATIENT
  Age: 87 Year
  Sex: Female

DRUGS (6)
  1. TRAMADOL (UNKNOWN) [Suspect]
     Indication: ANALGESIC THERAPY
     Dosage: 50 MG, PRN (1 OR 2 WHEN REQUIRED)
     Route: 065
     Dates: start: 20140328, end: 20140328
  2. DIPROBASE                          /01210201/ [Concomitant]
     Indication: DRY SKIN
     Dosage: UNK (AS DIRECTED.)
     Route: 061
     Dates: start: 20140315
  3. TRAXAM [Concomitant]
     Indication: PAIN
     Dosage: UNK (AS DIRECTED.)
     Route: 061
     Dates: start: 20140314
  4. CO-CODAMOL [Concomitant]
     Indication: PAIN
     Dosage: UNK, PRN (1 OR 2 AS NECESSARY; 30/500)
     Route: 048
     Dates: start: 20140314
  5. BISOPROLOL [Concomitant]
     Indication: PALPITATIONS
     Dosage: 1.25 MG, DAILY
     Route: 048
     Dates: start: 20140321
  6. BISOPROLOL [Concomitant]
     Dosage: 2.5 MG, BID
     Route: 048
     Dates: start: 20140314, end: 20140321

REACTIONS (3)
  - Syncope [Recovering/Resolving]
  - Dizziness [Recovering/Resolving]
  - Nausea [Recovering/Resolving]
